FAERS Safety Report 4686308-3 (Version None)
Quarter: 2005Q2

REPORT INFORMATION
  Report Type: 
  Country: None (occurrence: None)
  Receive Date: 20050606
  Receipt Date: 20050523
  Transmission Date: 20051028
  Serious: Yes (Life-Threatening, Hospitalization)
  Sender: FDA-Public Use
  Company Number: 214708

PATIENT
  Age: 73 Year
  Sex: Female
  Weight: 73 kg

DRUGS (12)
  1. MABTHERA               (RITUXIMAB) [Suspect]
     Indication: DIFFUSE LARGE B-CELL LYMPHOMA
     Dosage: 690 MG, INTRAVENOUS
     Route: 042
     Dates: start: 20050405, end: 20050511
  2. DOXORUBICIN HYDROCHLORIDE [Suspect]
     Indication: DIFFUSE LARGE B-CELL LYMPHOMA
     Dosage: 90 MG, Q14D, INTRAVENOUS
     Route: 042
     Dates: start: 20050406, end: 20050511
  3. CYCLOPHOSPHAMIDE [Suspect]
     Indication: DIFFUSE LARGE B-CELL LYMPHOMA
     Dosage: 1380 MG, Q14D, INTRAVENOUS
     Route: 042
     Dates: start: 20050406, end: 20050511
  4. VINCRISTINE [Suspect]
     Indication: DIFFUSE LARGE B-CELL LYMPHOMA
     Dosage: 2 MG, Q14D, INTRAVENOUS
     Route: 042
     Dates: start: 20050406, end: 20050511
  5. PREDNISONE [Suspect]
     Indication: DIFFUSE LARGE B-CELL LYMPHOMA
     Dosage: 100 MG, D1-5, Q14D, ORAL
     Route: 048
     Dates: start: 20050406, end: 20050512
  6. ALLOPURINOL [Concomitant]
  7. TORASEMID              (TORSEMIDE) [Concomitant]
  8. GABAPENTIN [Concomitant]
  9. OMEPRAZOLE [Concomitant]
  10. DICLOFENAC SODIUM [Concomitant]
  11. LEVOFLOXACIN [Concomitant]
  12. G-CSF              (FILGRASTIM) [Concomitant]

REACTIONS (9)
  - COLITIS ISCHAEMIC [None]
  - ENTEROCOLITIS HAEMORRHAGIC [None]
  - HYPOTENSION [None]
  - IMMUNOSUPPRESSION [None]
  - NEUTROPENIA [None]
  - POST PROCEDURAL COMPLICATION [None]
  - TACHYCARDIA [None]
  - THERAPY NON-RESPONDER [None]
  - THROMBOCYTOPENIA [None]
